FAERS Safety Report 10290537 (Version 2)
Quarter: 2014Q3

REPORT INFORMATION
  Report Type: Spontaneous
  Country: US (occurrence: US)
  Receive Date: 20140710
  Receipt Date: 20140711
  Transmission Date: 20150326
  Serious: No
  Sender: FDA-Public Use
  Company Number: US-BAYER-2014-103337

PATIENT
  Age: 56 Year
  Sex: Female

DRUGS (1)
  1. CLIMARA PRO [Suspect]
     Active Substance: ESTRADIOL\LEVONORGESTREL
     Indication: HORMONE REPLACEMENT THERAPY
     Dosage: UNK
     Dates: start: 20140706

REACTIONS (4)
  - Product physical issue [None]
  - Product adhesion issue [None]
  - Product expiration date issue [None]
  - Product physical issue [None]

NARRATIVE: CASE EVENT DATE: 20140706
